FAERS Safety Report 5637772-4 (Version None)
Quarter: 2008Q1

REPORT INFORMATION
  Report Type: 
  Country: None (occurrence: None)
  Receive Date: 20080219
  Receipt Date: 20080204
  Transmission Date: 20080703
  Serious: Yes (Other)
  Sender: FDA-Public Use
  Company Number: 44966

PATIENT
  Sex: Female

DRUGS (1)
  1. ACETYLCYSTEINE SOLUTION USP 10%130ML - BEDFORD LABS, INC. [Suspect]
     Dosage: 1ML VIA NEBULIZATION TWICE A D
     Dates: start: 20080115

REACTIONS (1)
  - MEDICATION ERROR [None]
